FAERS Safety Report 4303392-7 (Version None)
Quarter: 2004Q1

REPORT INFORMATION
  Report Type: 
  Country: None (occurrence: None)
  Receive Date: 20040223
  Receipt Date: 20040209
  Transmission Date: 20041129
  Serious: Yes (Disabling, Other)
  Sender: FDA-Public Use
  Company Number: 203227

PATIENT
  Sex: Male

DRUGS (3)
  1. MABTHERA (RITUXIMAB) CONC FOR SOLUTION FOR INFUSION [Suspect]
     Indication: NON-HODGKIN'S LYMPHOMA
     Dosage: 700 MG, 1/MONTH, INTRAVENOUS
     Route: 042
     Dates: start: 20030301, end: 20030601
  2. FLUDARABINE PHOSPHATE [Suspect]
     Indication: NON-HODGKIN'S LYMPHOMA
     Dosage: 50 MG, X3, INTRAVENOUS
     Route: 042
     Dates: start: 20030301, end: 20030601
  3. CYCLOPHOSPHAMIDE [Suspect]
     Indication: NON-HODGKIN'S LYMPHOMA
     Dosage: 400 MG, X3, INTRAVENOUS
     Route: 042
     Dates: start: 20030301, end: 20030601

REACTIONS (4)
  - BLOOD ALBUMIN DECREASED [None]
  - OEDEMA PERIPHERAL [None]
  - PROTEINURIA [None]
  - RENAL AMYLOIDOSIS [None]
